FAERS Safety Report 6786163-1 (Version None)
Quarter: 2010Q2

REPORT INFORMATION
  Report Type: 
  Country: None (occurrence: None)
  Receive Date: 20100622
  Receipt Date: 20100622
  Transmission Date: 20101027
  Serious: Yes (Other)
  Sender: FDA-Public Use
  Company Number: None

PATIENT
  Age: 22 Year
  Sex: Female
  Weight: 57.1532 kg

DRUGS (1)
  1. LUPRON DEPOT [Suspect]
     Indication: ENDOMETRIOSIS
     Dosage: 3.75MG ONCE A MONTH IM
     Route: 030
     Dates: start: 20100614, end: 20100618

REACTIONS (5)
  - ABDOMINAL DISCOMFORT [None]
  - HYPOAESTHESIA [None]
  - INJECTION SITE DISCOMFORT [None]
  - PHARYNGEAL OEDEMA [None]
  - VERTIGO [None]
